FAERS Safety Report 21764146 (Version 1)
Quarter: 2022Q4

REPORT INFORMATION
  Report Type: Spontaneous
  Country: US (occurrence: US)
  Receive Date: 20221222
  Receipt Date: 20221222
  Transmission Date: 20230113
  Serious: No
  Sender: FDA-Public Use
  Company Number: US-AMGEN-USASP2022209209

PATIENT
  Sex: Female

DRUGS (1)
  1. PROLIA [Suspect]
     Active Substance: DENOSUMAB
     Indication: Osteoporosis postmenopausal
     Dosage: UNK
     Route: 065

REACTIONS (7)
  - Urinary tract disorder [Unknown]
  - Functional gastrointestinal disorder [Unknown]
  - Visual impairment [Unknown]
  - Chills [Unknown]
  - Hyperhidrosis [Unknown]
  - Pyrexia [Unknown]
  - Headache [Unknown]
